FAERS Safety Report 8416720-8 (Version None)
Quarter: 2012Q2

REPORT INFORMATION
  Report Type: 
  Country: None (occurrence: None)
  Receive Date: 20120530
  Receipt Date: 20120521
  Transmission Date: 20120825
  Serious: Yes (Death)
  Sender: FDA-Public Use
  Company Number: B0803820A

PATIENT
  Age: 37 Year
  Sex: Male

DRUGS (3)
  1. ETHANOL (FORMULATIO UNKNOWN) (ALCOHOL) [Suspect]
     Dosage: ORAL
     Route: 048
  2. ACETAMINOPHEN [Concomitant]
  3. ROPINIROLE [Suspect]

REACTIONS (4)
  - HEPATIC CONGESTION [None]
  - PULMONARY OEDEMA [None]
  - TOXICITY TO VARIOUS AGENTS [None]
  - ANGIOPATHY [None]
